FAERS Safety Report 4434236-0 (Version None)
Quarter: 2004Q3

REPORT INFORMATION
  Report Type: 
  Country: None (occurrence: None)
  Receive Date: 20040825
  Receipt Date: 20040810
  Transmission Date: 20050211
  Serious: Yes (Hospitalization)
  Sender: FDA-Public Use
  Company Number: US_0408104803

PATIENT
  Age: 47 Year
  Sex: Female
  Weight: 49 kg

DRUGS (2)
  1. GEMCITABINE HYDROCHLORIDE-IV (GEMCITABINE) [Suspect]
     Indication: CERVIX CARCINOMA
     Dosage: 1400 MG WEEK
     Dates: start: 20040309, end: 20040714
  2. CISPLATIN (CISPLATIN PHARMACIA) [Suspect]
     Indication: CERVIX CARCINOMA
     Dosage: 70 MG OTHER
     Dates: start: 20040309, end: 20040707

REACTIONS (11)
  - ANAEMIA [None]
  - BLADDER NEOPLASM [None]
  - CYSTITIS HAEMORRHAGIC [None]
  - DISCOMFORT [None]
  - HYDRONEPHROSIS [None]
  - NAUSEA [None]
  - OEDEMA [None]
  - RENAL FAILURE [None]
  - URETHRAL STRICTURE [None]
  - URINE FLOW DECREASED [None]
  - VOMITING [None]
